FAERS Safety Report 13559916 (Version 1)
Quarter: 2017Q2

REPORT INFORMATION
  Report Type: Report from Study
  Country: TW (occurrence: TW)
  Receive Date: 20170518
  Receipt Date: 20170518
  Transmission Date: 20170830
  Serious: Yes (Other)
  Sender: FDA-Public Use
  Company Number: TW-UNICHEM LABORATORIES LIMITED-UCM201705-000128

PATIENT
  Age: 36 Year
  Sex: Female

DRUGS (3)
  1. DIVALPROEX SODIUM. [Suspect]
     Active Substance: DIVALPROEX SODIUM
  2. LITHIUM. [Concomitant]
     Active Substance: LITHIUM
  3. LORAZEPAM. [Concomitant]
     Active Substance: LORAZEPAM

REACTIONS (2)
  - Loss of consciousness [Recovered/Resolved]
  - Hyperammonaemia [Recovered/Resolved]
